FAERS Safety Report 12787388 (Version 1)
Quarter: 2016Q3

REPORT INFORMATION
  Report Type: Spontaneous
  Country: IL (occurrence: IL)
  Receive Date: 20160928
  Receipt Date: 20160928
  Transmission Date: 20161109
  Serious: Yes (Hospitalization)
  Sender: FDA-Public Use
  Company Number: IL-NOVOPROD-511574

PATIENT
  Age: 68 Year
  Sex: Female

DRUGS (1)
  1. TREGLUDEC [Suspect]
     Active Substance: INSULIN DEGLUDEC
     Indication: PRODUCT USED FOR UNKNOWN INDICATION
     Dosage: 40 U, QD
     Route: 058

REACTIONS (2)
  - Renal disorder [Unknown]
  - Condition aggravated [Unknown]
